FAERS Safety Report 8792245 (Version 1)
Quarter: 2012Q4

REPORT INFORMATION
  Report Type: 
  Country: US (occurrence: US)
  Receive Date: 20120918
  Receipt Date: 20120918
  Transmission Date: 20130627
  Serious: No
  Sender: FDA-Public Use
  Company Number: US-PFIZER INC-2012227938

PATIENT
  Age: 65 Year
  Sex: Male
  Weight: 102 kg

DRUGS (8)
  1. VIAGRA [Suspect]
     Indication: ERECTILE DYSFUNCTION
     Dosage: UNK
     Route: 048
     Dates: end: 201209
  2. METOPROLOL [Concomitant]
     Indication: BLOOD PRESSURE ABNORMAL
     Dosage: 25 mg, daily
  3. LISINOPRIL [Concomitant]
     Indication: BLOOD PRESSURE ABNORMAL
     Dosage: 20 mg, daily
  4. LOSARTAN [Concomitant]
     Indication: BLOOD PRESSURE ABNORMAL
     Dosage: 100 mg, daily
     Dates: start: 2012
  5. NIACIN [Concomitant]
     Indication: CARDIAC DISORDER
     Dosage: 500 mg, daily
  6. PLAVIX [Concomitant]
     Indication: ANTICOAGULANT THERAPY
     Dosage: 75 mg, daily
  7. GEMFIBROZIL [Concomitant]
     Dosage: 600 mg, 2x/day
  8. ATORVASTATIN CALCIUM [Concomitant]
     Dosage: 40 mg, daily

REACTIONS (1)
  - Drug ineffective [Unknown]
